FAERS Safety Report 17871261 (Version 1)
Quarter: 2020Q2

REPORT INFORMATION
  Report Type: Spontaneous
  Country: CA (occurrence: CA)
  Receive Date: 20200608
  Receipt Date: 20200608
  Transmission Date: 20200714
  Serious: Yes (Other)
  Sender: FDA-Public Use
  Company Number: CA-PFIZER INC-2020217965

PATIENT

DRUGS (8)
  1. BISOPROLOL [Suspect]
     Active Substance: BISOPROLOL
     Dosage: 2.5 MG, 1X/DAY
  2. LATANOPROST. [Suspect]
     Active Substance: LATANOPROST
     Dosage: UNK
     Route: 065
  3. LOSARTAN. [Suspect]
     Active Substance: LOSARTAN
     Dosage: 50 MG, 1X/DAY
     Route: 065
  4. INFLIXIMAB [Suspect]
     Active Substance: INFLIXIMAB
     Dosage: 1 EVERY 8 WEEKS
     Route: 065
  5. HYDROCHLOROTHIAZIDE. [Suspect]
     Active Substance: HYDROCHLOROTHIAZIDE
     Dosage: 12.5 MG, 1X/DAY
  6. FENTANYL. [Concomitant]
     Active Substance: FENTANYL
     Indication: SEDATION
     Dosage: 100 UG
     Route: 065
  7. MIDAZOLAM HYDROCHLORIDE. [Concomitant]
     Active Substance: MIDAZOLAM HYDROCHLORIDE
     Indication: SEDATION
     Dosage: 5 MG
  8. LATANOPROST. [Suspect]
     Active Substance: LATANOPROST
     Dosage: UNK

REACTIONS (5)
  - Large intestine polyp [Unknown]
  - Haemorrhoids [Unknown]
  - Diverticulitis [Unknown]
  - Diarrhoea [Unknown]
  - Obesity [Unknown]
